FAERS Safety Report 10227174 (Version 1)
Quarter: 2014Q2

REPORT INFORMATION
  Report Type: Spontaneous
  Country: ES (occurrence: None)
  Receive Date: 20140606
  Receipt Date: 20140606
  Transmission Date: 20141212
  Serious: Yes (Death, Other)
  Sender: FDA-Public Use
  Company Number: KAD201405-000532

PATIENT
  Sex: 0

DRUGS (3)
  1. RIBAVIRIN [Suspect]
  2. PEGINTERFERON ALFA-2A [Suspect]
  3. TELAPREVIR (TELAPREVIR) [Suspect]

REACTIONS (3)
  - Aplastic anaemia [None]
  - Sepsis [None]
  - Multi-organ failure [None]
